FAERS Safety Report 22006469 (Version 1)
Quarter: 2023Q1

REPORT INFORMATION
  Report Type: Spontaneous
  Country: CA (occurrence: CA)
  Receive Date: 20230217
  Receipt Date: 20230217
  Transmission Date: 20230417
  Serious: Yes (Life-Threatening, Other)
  Sender: FDA-Public Use
  Company Number: CA-TEVA-2023-CA-2855587

PATIENT
  Age: 43 Year
  Sex: Female

DRUGS (1)
  1. ESCITALOPRAM OXALATE [Suspect]
     Active Substance: ESCITALOPRAM OXALATE
     Indication: Anxiety
     Dosage: 10 MILLIGRAM DAILY;
     Route: 048

REACTIONS (14)
  - Akathisia [Unknown]
  - Anhedonia [Unknown]
  - Anxiety [Unknown]
  - Decreased appetite [Unknown]
  - Depersonalisation/derealisation disorder [Unknown]
  - Depression [Unknown]
  - Derealisation [Unknown]
  - Drug titration [Unknown]
  - Fear [Unknown]
  - Insomnia [Unknown]
  - Loss of personal independence in daily activities [Unknown]
  - Panic attack [Unknown]
  - Suicidal ideation [Unknown]
  - Withdrawal syndrome [Unknown]
